FAERS Safety Report 4543862-X (Version None)
Quarter: 2005Q1

REPORT INFORMATION
  Report Type: 
  Country: None (occurrence: None)
  Receive Date: 20050103
  Receipt Date: 20041213
  Transmission Date: 20050727
  Serious: Yes (Other)
  Sender: FDA-Public Use
  Company Number: GXKR2004GB00603

PATIENT
  Age: 25 Year
  Sex: Female

DRUGS (6)
  1. GABAPENTIN [Suspect]
     Dosage: ORAL
     Route: 048
  2. PROPRANOLOL [Suspect]
     Dosage: ORAL
     Route: 048
  3. DETRUSITOL (TOLTERODINE L-TARTRATE) TABLET, 2MG [Suspect]
     Indication: BLADDER DISORDER
     Dosage: 2 MG, QID,ORAL
     Route: 048
  4. ZOPICLONE (ZOPICLONE) [Suspect]
     Dosage: BID,ORAL
     Route: 048
  5. CLONAZEPAM [Suspect]
     Dosage: ORAL
     Route: 048
  6. SERTRALINE (SERTRALINE) [Suspect]
     Dosage: QID

REACTIONS (3)
  - ABORTION SPONTANEOUS [None]
  - DRUG EXPOSURE DURING PREGNANCY [None]
  - HAEMORRHAGE [None]
